FAERS Safety Report 4968108-X (Version None)
Quarter: 2006Q2

REPORT INFORMATION
  Report Type: 
  Country: None (occurrence: None)
  Receive Date: 20060405
  Receipt Date: 20060330
  Transmission Date: 20061013
  Serious: Yes (Other)
  Sender: FDA-Public Use
  Company Number: HQWYE584030MAR06

PATIENT
  Age: 66 Year
  Sex: Female

DRUGS (1)
  1. INDERAL [Suspect]
     Dosage: 100 MG 1X PER 1 DAY
     Route: 048

REACTIONS (4)
  - BEDRIDDEN [None]
  - DIFFICULTY IN WALKING [None]
  - MALAISE [None]
  - THERAPY REGIMEN CHANGED [None]
